FAERS Safety Report 25734419 (Version 1)
Quarter: 2025Q3

REPORT INFORMATION
  Report Type: Spontaneous
  Country: US (occurrence: US)
  Receive Date: 20250828
  Receipt Date: 20250828
  Transmission Date: 20251021
  Serious: Yes (Life-Threatening, Hospitalization, Other)
  Sender: ZYDUS PHARM
  Company Number: US-CADILA HEALTHCARE LIMITED-US-ZYDUS-127829

PATIENT

DRUGS (6)
  1. DEXTROAMPHETAMINE SACCHARATE, AMPHETAMINE ASPARTATE, DEXTROAMPHETAMINE [Suspect]
     Active Substance: AMPHETAMINE ASPARTATE\AMPHETAMINE SULFATE\DEXTROAMPHETAMINE SACCHARATE\DEXTROAMPHETAMINE SULFATE
     Indication: Attention deficit hyperactivity disorder
     Route: 065
  2. NITROGLYCERIN [Suspect]
     Active Substance: NITROGLYCERIN
     Indication: Arteriospasm coronary
     Route: 022
  3. NITROGLYCERIN [Suspect]
     Active Substance: NITROGLYCERIN
     Route: 060
  4. NITROGLYCERIN [Suspect]
     Active Substance: NITROGLYCERIN
     Route: 042
  5. DILTIAZEM [Concomitant]
     Active Substance: DILTIAZEM
     Indication: Arteriospasm coronary
     Route: 048
  6. ISOSORBIDE MONONITRATE [Concomitant]
     Active Substance: ISOSORBIDE MONONITRATE
     Indication: Angina pectoris
     Route: 065

REACTIONS (2)
  - Arteriospasm coronary [Unknown]
  - Drug resistance [Unknown]
